FAERS Safety Report 5137482-6 (Version None)
Quarter: 2006Q4

REPORT INFORMATION
  Report Type: 
  Country: None (occurrence: None)
  Receive Date: 20061030
  Receipt Date: 20051109
  Transmission Date: 20070319
  Serious: No
  Sender: FDA-Public Use
  Company Number: US-GLAXOSMITHKLINE-A0581602A

PATIENT
  Age: 69 Year
  Sex: Male
  Weight: 74.1 kg

DRUGS (11)
  1. ADVAIR HFA [Suspect]
     Indication: CHRONIC OBSTRUCTIVE PULMONARY DISEASE
     Dosage: 1PUFF TWICE PER DAY
     Route: 055
  2. OXYGEN [Concomitant]
  3. NEBULIZER [Concomitant]
  4. ALBUTEROL [Concomitant]
  5. IPRATROPIUM BROMIDE [Concomitant]
  6. SINGULAIR [Concomitant]
  7. VITAMINS [Concomitant]
  8. COZAAR [Concomitant]
  9. TOPROL-XL [Concomitant]
  10. LASIX [Concomitant]
  11. FLOMAX [Concomitant]

REACTIONS (2)
  - ALOPECIA [None]
  - DRY SKIN [None]
